FAERS Safety Report 25642387 (Version 1)
Quarter: 2025Q3

REPORT INFORMATION
  Report Type: Spontaneous
  Country: US (occurrence: US)
  Receive Date: 20250805
  Receipt Date: 20250805
  Transmission Date: 20251021
  Serious: Yes (Other)
  Sender: NOVO NORDISK
  Company Number: US-NOVOPROD-1492108

PATIENT

DRUGS (3)
  1. NORDITROPIN [Suspect]
     Active Substance: SOMATROPIN
     Indication: Hypopituitarism
     Dates: start: 2025, end: 2025
  2. NORDITROPIN [Suspect]
     Active Substance: SOMATROPIN
     Dates: start: 2025
  3. SOGROYA [Suspect]
     Active Substance: SOMAPACITAN-BECO
     Indication: Hypopituitarism
     Dates: start: 2025, end: 2025

REACTIONS (1)
  - Acquired growth hormone resistance [Not Recovered/Not Resolved]

NARRATIVE: CASE EVENT DATE: 20250101
